FAERS Safety Report 6749423-6 (Version None)
Quarter: 2010Q2

REPORT INFORMATION
  Report Type: 
  Country: None (occurrence: None)
  Receive Date: 20100601
  Receipt Date: 20100524
  Transmission Date: 20101027
  Serious: No
  Sender: FDA-Public Use
  Company Number: BR-ROCHE-705549

PATIENT
  Age: 24 Year
  Sex: Female
  Weight: 65 kg

DRUGS (2)
  1. ROACUTAN [Suspect]
     Indication: ACNE
     Route: 048
     Dates: start: 20090821, end: 20100424
  2. SELENE [Suspect]
     Indication: DRUG USE FOR UNKNOWN INDICATION
     Route: 065

REACTIONS (2)
  - NO ADVERSE EVENT [None]
  - PREGNANCY [None]
